FAERS Safety Report 13121583 (Version 1)
Quarter: 2017Q1

REPORT INFORMATION
  Report Type: Spontaneous
  Country: US (occurrence: US)
  Receive Date: 20170115
  Receipt Date: 20170115
  Transmission Date: 20170428
  Serious: Yes (Other)
  Sender: FDA-Public Use
  Company Number: None

PATIENT
  Age: 60 Year
  Sex: Female
  Weight: 110.25 kg

DRUGS (7)
  1. PROAIR HFA [Concomitant]
     Active Substance: ALBUTEROL SULFATE
  2. ALLEGRA [Concomitant]
     Active Substance: FEXOFENADINE HYDROCHLORIDE
  3. COQ10 [Concomitant]
     Active Substance: UBIDECARENONE
  4. INVOKANA [Suspect]
     Active Substance: CANAGLIFLOZIN
     Indication: TYPE 2 DIABETES MELLITUS
     Dosage: ?          QUANTITY:1 CAPSULE(S);?
     Route: 048
     Dates: start: 20160526, end: 20160616
  5. MSM [Concomitant]
     Active Substance: DIMETHYL SULFONE
  6. FISH OIL [Concomitant]
     Active Substance: FISH OIL
  7. GRAPE SEED EXTRACT [Concomitant]
     Active Substance: GRAPE SEED EXTRACT

REACTIONS (3)
  - Fungal infection [None]
  - Cystitis [None]
  - Arthralgia [None]

NARRATIVE: CASE EVENT DATE: 20160616
